FAERS Safety Report 19077441 (Version 1)
Quarter: 2021Q1

REPORT INFORMATION
  Report Type: Spontaneous
  Country: US (occurrence: US)
  Receive Date: 20210331
  Receipt Date: 20210331
  Transmission Date: 20210420
  Serious: Yes (Hospitalization)
  Sender: FDA-Public Use
  Company Number: None

PATIENT
  Age: 65 Year
  Sex: Male
  Weight: 184.95 kg

DRUGS (4)
  1. BAMLANIVIMAB. [Concomitant]
     Active Substance: BAMLANIVIMAB
     Dates: start: 20210330, end: 20210330
  2. ETESEVIMAB. [Concomitant]
     Active Substance: ETESEVIMAB
     Dates: start: 20210330, end: 20210330
  3. BAMLANIVIMAB. [Suspect]
     Active Substance: BAMLANIVIMAB
     Indication: COVID-19
     Dosage: ?          OTHER FREQUENCY:ONE HOUR;?
     Route: 042
     Dates: start: 20210330, end: 20210330
  4. ETESEVIMAB. [Suspect]
     Active Substance: ETESEVIMAB
     Indication: COVID-19
     Dosage: ?          OTHER FREQUENCY:ONE HOUR;?
     Route: 042
     Dates: start: 20210330, end: 20210330

REACTIONS (1)
  - Chest pain [None]

NARRATIVE: CASE EVENT DATE: 20210330
